FAERS Safety Report 16656230 (Version 3)
Quarter: 2019Q3

REPORT INFORMATION
  Report Type: Spontaneous
  Country: US (occurrence: US)
  Receive Date: 20190801
  Receipt Date: 20190905
  Transmission Date: 20191004
  Serious: Yes (Other)
  Sender: FDA-Public Use
  Company Number: US-JNJFOC-20190730957

PATIENT
  Age: 68 Year
  Sex: Female
  Weight: 40.41 kg

DRUGS (8)
  1. DURAGESIC [Suspect]
     Active Substance: FENTANYL
     Indication: PAIN
     Route: 062
     Dates: start: 1996
  2. DURAGESIC [Suspect]
     Active Substance: FENTANYL
     Route: 062
  3. CORTISONE [Concomitant]
     Active Substance: CORTISONE
     Route: 061
  4. OXYMORPHONE [Concomitant]
     Active Substance: OXYMORPHONE
     Dosage: UPTO 4 TIMES A DAY
     Route: 048
  5. DURAGESIC [Suspect]
     Active Substance: FENTANYL
     Indication: BACK PAIN
     Route: 062
     Dates: start: 2002, end: 2002
  6. ASMANEX [Concomitant]
     Active Substance: MOMETASONE FUROATE
     Indication: ASTHMA
     Route: 065
  7. NASOCORT [Concomitant]
     Active Substance: BUDESONIDE
     Route: 065
  8. DURAGESIC [Suspect]
     Active Substance: FENTANYL
     Route: 062

REACTIONS (14)
  - Wrist fracture [Recovered/Resolved]
  - Concussion [Recovered/Resolved]
  - Drug ineffective [Not Recovered/Not Resolved]
  - Treatment noncompliance [Recovered/Resolved]
  - Weight decreased [Not Recovered/Not Resolved]
  - Hip arthroplasty [Recovered/Resolved]
  - Arthritis [Not Recovered/Not Resolved]
  - Tooth extraction [Recovered/Resolved]
  - Hand fracture [Recovered/Resolved]
  - Lower limb fracture [Recovered/Resolved]
  - Fall [Recovered/Resolved]
  - Back disorder [Not Recovered/Not Resolved]
  - Dizziness [Recovered/Resolved]
  - Product complaint [Not Recovered/Not Resolved]

NARRATIVE: CASE EVENT DATE: 1996
